FAERS Safety Report 9447861 (Version 1)
Quarter: 2013Q3

REPORT INFORMATION
  Report Type: Spontaneous
  Country: IT (occurrence: IT)
  Receive Date: 20130808
  Receipt Date: 20130808
  Transmission Date: 20140515
  Serious: Yes (Hospitalization)
  Sender: FDA-Public Use
  Company Number: IT-BRISTOL-MYERS SQUIBB COMPANY-19161793

PATIENT
  Age: 82 Year
  Sex: Female

DRUGS (9)
  1. COUMADIN TABS 5 MG [Suspect]
     Indication: ATRIAL FIBRILLATION
     Dosage: 1DF=1 UNIT NOS?INTERRUPTED ON 09-JUL-2013
     Route: 048
     Dates: start: 20130101
  2. SELEPARINA [Suspect]
     Indication: ATRIAL FIBRILLATION
     Dosage: 1DF=1 UNIT-NOS
     Route: 058
     Dates: start: 20130601, end: 20130709
  3. CLENIL [Concomitant]
     Route: 048
  4. FLUIBRON [Concomitant]
     Dosage: FLUIBRON THROAT
     Route: 048
  5. LASIX [Concomitant]
     Route: 048
  6. MEDROL [Concomitant]
     Dosage: TABS
     Route: 048
  7. CARDICOR [Concomitant]
     Dosage: TAB
     Route: 048
  8. AUGMENTIN [Concomitant]
     Dosage: 1DF=875/125 UNITS-NOS
     Route: 048
  9. LEVOXACIN [Concomitant]
     Route: 048

REACTIONS (3)
  - Abdominal wall haematoma [Unknown]
  - Anuria [Unknown]
  - Abdominal pain [Unknown]
